FAERS Safety Report 4552848-0 (Version None)
Quarter: 2005Q1

REPORT INFORMATION
  Report Type: 
  Country: None (occurrence: None)
  Receive Date: 20050112
  Receipt Date: 20050112
  Transmission Date: 20050727
  Serious: No
  Sender: FDA-Public Use
  Company Number: None

PATIENT
  Age: 45 Year
  Sex: Male

DRUGS (1)
  1. PEGASYS [Suspect]
     Indication: HEPATITIS C
     Dosage: 180 MCG SC WEEKLY
     Route: 058

REACTIONS (3)
  - ARTHRITIS BACTERIAL [None]
  - BACTERAEMIA [None]
  - MOVEMENT DISORDER [None]
